FAERS Safety Report 7941752-3 (Version None)
Quarter: 2011Q4

REPORT INFORMATION
  Report Type: 
  Country: None (occurrence: None)
  Receive Date: 20111128
  Receipt Date: 20110929
  Transmission Date: 20120403
  Serious: No
  Sender: FDA-Public Use
  Company Number: US-BAYER-2011-094411

PATIENT
  Age: 34 Year
  Sex: Male
  Weight: 145 kg

DRUGS (1)
  1. ALEVE (CAPLET) [Suspect]
     Dosage: 3 ALEVE, FORGOT THEN TOOK 3 MORE AN HOUR LATER
     Route: 048
     Dates: start: 20110929

REACTIONS (1)
  - DYSPEPSIA [None]
